FAERS Safety Report 23568952 (Version 1)
Quarter: 2024Q1

REPORT INFORMATION
  Report Type: Report from Study
  Country: US (occurrence: US)
  Receive Date: 20240227
  Receipt Date: 20240227
  Transmission Date: 20240409
  Serious: No
  Sender: FDA-Public Use
  Company Number: US-ORG100014127-2023001026

PATIENT
  Age: 41 Year
  Sex: Female

DRUGS (10)
  1. METOPIRONE [Suspect]
     Active Substance: METYRAPONE
     Indication: Adrenal gland cancer
     Dosage: TAKE 03 CAPSULE BY MOUTH 03 TIMES DAILY
     Route: 048
     Dates: start: 20230823
  2. Cisplatin Inj 100mg [Concomitant]
     Indication: Product used for unknown indication
  3. Doxorubicin INJ 10mg [Concomitant]
     Indication: Product used for unknown indication
  4. ETOPOSIDE [Concomitant]
     Active Substance: ETOPOSIDE
     Indication: Product used for unknown indication
  5. Granisetron TAB 1mg [Concomitant]
     Indication: Product used for unknown indication
  6. Lorazepam Tab 0.5mg [Concomitant]
     Indication: Product used for unknown indication
  7. Magnesium cap 125mg [Concomitant]
     Indication: Product used for unknown indication
  8. Morphine SUL INJ 1mg/ml [Concomitant]
     Indication: Product used for unknown indication
  9. Ondansetron INJ 4mg/2ml [Concomitant]
     Indication: Product used for unknown indication
  10. Pot chloride sol 10 percent [Concomitant]
     Indication: Product used for unknown indication

REACTIONS (1)
  - Off label use [Unknown]

NARRATIVE: CASE EVENT DATE: 20230823
